FAERS Safety Report 4531068-X (Version None)
Quarter: 2004Q4

REPORT INFORMATION
  Report Type: 
  Country: None (occurrence: None)
  Receive Date: 20041215
  Receipt Date: 20041202
  Transmission Date: 20050328
  Serious: Yes (Hospitalization, Disabling)
  Sender: FDA-Public Use
  Company Number: 2004102628

PATIENT
  Age: 47 Year
  Sex: Female

DRUGS (2)
  1. CELEBREX [Suspect]
     Indication: ARTHRALGIA
     Dosage: 400 MG (200 MG, 2 IN 1 D)
  2. ROXITHROMYCIN  (ROXITHROMYCIN) [Suspect]
     Indication: PHARYNGOLARYNGEAL PAIN
     Dosage: 300 MG (300 MG, 1 IN 1 D)

REACTIONS (27)
  - ADJUSTMENT DISORDER [None]
  - ANGER [None]
  - ANXIETY [None]
  - ARTERIAL OCCLUSIVE DISEASE [None]
  - ARTERIAL THROMBOSIS LIMB [None]
  - DEPRESSION [None]
  - DIFFICULTY IN WALKING [None]
  - DISTURBANCE IN ATTENTION [None]
  - DRUG HYPERSENSITIVITY [None]
  - DYSSTASIA [None]
  - FATIGUE [None]
  - IMPAIRED DRIVING ABILITY [None]
  - INSOMNIA [None]
  - INTERMITTENT CLAUDICATION [None]
  - MARITAL PROBLEM [None]
  - MENOPAUSAL SYMPTOMS [None]
  - NERVE INJURY [None]
  - NEUROPATHIC PAIN [None]
  - NIGHTMARE [None]
  - PAIN IN EXTREMITY [None]
  - PODIATRIC EXAMINATION ABNORMAL [None]
  - POST-TRAUMATIC STRESS DISORDER [None]
  - PSYCHIATRIC SYMPTOM [None]
  - RASH PRURITIC [None]
  - SEDATION [None]
  - SELF ESTEEM DECREASED [None]
  - WEIGHT INCREASED [None]
